FAERS Safety Report 6316292-8 (Version None)
Quarter: 2009Q3

REPORT INFORMATION
  Report Type: 
  Country: None (occurrence: None)
  Receive Date: 20090820
  Receipt Date: 20090812
  Transmission Date: 20100115
  Serious: Yes (Other)
  Sender: FDA-Public Use
  Company Number: US-ASTRAZENECA-2009SE07765

PATIENT
  Age: 89 Year
  Sex: Female

DRUGS (2)
  1. CRESTOR [Suspect]
     Indication: BLOOD CHOLESTEROL
     Route: 048
     Dates: start: 20090101
  2. CRESTOR [Suspect]
     Indication: BLOOD PRESSURE
     Route: 048
     Dates: start: 20090101

REACTIONS (1)
  - TYPE 2 DIABETES MELLITUS [None]
